FAERS Safety Report 17474810 (Version 1)
Quarter: 2020Q1

REPORT INFORMATION
  Report Type: Report from Study
  Country: IE (occurrence: IE)
  Receive Date: 20200228
  Receipt Date: 20200228
  Transmission Date: 20200409
  Serious: Yes (Other)
  Sender: FDA-Public Use
  Company Number: IE-JNJFOC-20190612598

PATIENT
  Sex: Female

DRUGS (5)
  1. CALCHEW [Concomitant]
     Route: 065
  2. NEPRAMEL [Concomitant]
     Route: 065
  3. STELARA [Suspect]
     Active Substance: USTEKINUMAB
     Indication: CROHN^S DISEASE
     Route: 058
     Dates: start: 20180315, end: 20190607
  4. STELARA [Suspect]
     Active Substance: USTEKINUMAB
     Indication: PSORIASIS
     Route: 058
  5. MYCOSTATIN [Concomitant]
     Active Substance: NYSTATIN
     Route: 065

REACTIONS (7)
  - Crohn^s disease [Recovering/Resolving]
  - Ocular hyperaemia [Recovering/Resolving]
  - Urine odour abnormal [Unknown]
  - Chromaturia [Unknown]
  - Rhinitis [Recovering/Resolving]
  - Breast mass [Not Recovered/Not Resolved]
  - Ocular icterus [Recovering/Resolving]
